FAERS Safety Report 6276098-5 (Version None)
Quarter: 2009Q3

REPORT INFORMATION
  Report Type: 
  Country: None (occurrence: None)
  Receive Date: 20090722
  Receipt Date: 20070831
  Transmission Date: 20100115
  Serious: Yes (Other)
  Sender: FDA-Public Use
  Company Number: US-ASTRAZENECA-2006UW21374

PATIENT
  Age: 50 Year
  Sex: Male
  Weight: 117.9 kg

DRUGS (12)
  1. SEROQUEL [Suspect]
     Indication: BIPOLAR DISORDER
     Dosage: 25 MG TO 300 MG
     Route: 048
     Dates: start: 20010101
  2. SEROQUEL [Suspect]
     Indication: SLEEP DISORDER
     Dosage: 25 MG TO 300 MG
     Route: 048
     Dates: start: 20010101
  3. SEROQUEL [Suspect]
     Route: 048
     Dates: start: 20050614
  4. SEROQUEL [Suspect]
     Route: 048
     Dates: start: 20050614
  5. WELLBUTRIN [Concomitant]
  6. ACETAMINOPHEN [Concomitant]
     Indication: PAIN
     Route: 048
     Dates: start: 20050615
  7. ASPIRIN [Concomitant]
     Indication: CARDIAC DISORDER
     Route: 048
     Dates: start: 20050615
  8. METFORMIN HYDROCHLORIDE [Concomitant]
     Indication: BLOOD GLUCOSE
     Route: 048
     Dates: start: 20050615
  9. SERTRALINE [Concomitant]
     Indication: DEPRESSION
     Route: 048
     Dates: start: 20050615
  10. VERAPAMIL HYDROCHLORIDE [Concomitant]
     Route: 048
     Dates: start: 20050615
  11. NITROGLYCERIN [Concomitant]
     Indication: CHEST PAIN
     Route: 048
     Dates: start: 20050615
  12. LISINOPRIL AND HYDROCHLOROTHIAZIDE [Concomitant]
     Indication: BLOOD PRESSURE
     Dosage: 25/20 MG
     Route: 048
     Dates: start: 20050615

REACTIONS (6)
  - DIABETES MELLITUS [None]
  - DIABETES MELLITUS INADEQUATE CONTROL [None]
  - DIABETIC FOOT [None]
  - DIABETIC NEUROPATHY [None]
  - DIABETIC ULCER [None]
  - NEUROPATHY PERIPHERAL [None]
